FAERS Safety Report 9861777 (Version 4)
Quarter: 2015Q4

REPORT INFORMATION
  Report Type: Report from Study
  Country: US (occurrence: US)
  Receive Date: 20140203
  Receipt Date: 20151016
  Transmission Date: 20160305
  Serious: Yes (Other)
  Sender: FDA-Public Use
  Company Number: US-ROCHE-1310398

PATIENT
  Sex: Female

DRUGS (12)
  1. LUCENTIS [Suspect]
     Active Substance: RANIBIZUMAB
     Indication: DIABETIC EYE DISEASE
     Dosage: RIGHT EYE
     Route: 050
     Dates: start: 20140120
  2. LUCENTIS [Suspect]
     Active Substance: RANIBIZUMAB
     Dosage: 0.3 MG/0.05 ML IN LEFT EYE
     Route: 050
     Dates: start: 20130513
  3. LUCENTIS [Suspect]
     Active Substance: RANIBIZUMAB
     Indication: DIABETIC RETINOPATHY
     Dosage: 0.03MG/0.05ML LEFT EYE
     Route: 050
     Dates: start: 20130128
  4. LUCENTIS [Suspect]
     Active Substance: RANIBIZUMAB
     Route: 050
  5. LUCENTIS [Suspect]
     Active Substance: RANIBIZUMAB
     Indication: DIABETIC RETINAL OEDEMA
     Dosage: BOTH EYES (OU), OD EVERY 12 WEEKS AND OS EVERY 8 WEEKS
     Route: 050
     Dates: start: 20131007
  6. EXFORGE [Concomitant]
     Active Substance: AMLODIPINE BESYLATE\VALSARTAN
  7. LANTUS [Concomitant]
     Active Substance: INSULIN GLARGINE
     Dosage: 100 UNIT/ML
     Route: 065
  8. AVASTIN [Suspect]
     Active Substance: BEVACIZUMAB
     Indication: PRODUCT USED FOR UNKNOWN INDICATION
     Route: 065
  9. VYTORIN [Concomitant]
     Active Substance: EZETIMIBE\SIMVASTATIN
     Dosage: 10-10
     Route: 065
  10. INSULIN HUMAN [Concomitant]
     Active Substance: INSULIN HUMAN
  11. ZYMAR [Concomitant]
     Active Substance: GATIFLOXACIN
     Dosage: FOR 3 DAYS
     Route: 065
  12. LUCENTIS [Suspect]
     Active Substance: RANIBIZUMAB
     Dosage: 0.3MG/0.05ML RIGHT EYE
     Route: 050
     Dates: start: 20130204

REACTIONS (6)
  - Macular oedema [Unknown]
  - Macular pigmentation [Unknown]
  - Visual acuity reduced [Unknown]
  - Pinguecula [Unknown]
  - Retinal degeneration [Unknown]
  - Retinal scar [Unknown]
